FAERS Safety Report 5743625-3 (Version None)
Quarter: 2008Q2

REPORT INFORMATION
  Report Type: 
  Country: None (occurrence: None)
  Receive Date: 20080516
  Receipt Date: 20080422
  Transmission Date: 20081010
  Serious: Yes (Hospitalization)
  Sender: FDA-Public Use
  Company Number: 2008PV000026

PATIENT
  Age: 64 Year
  Sex: Female
  Weight: 55.4 kg

DRUGS (7)
  1. DEPOCYT [Suspect]
     Dosage: 50 MG;INTH
     Route: 037
     Dates: start: 20070502
  2. DEXAMETASON [Concomitant]
  3. ESCITALOPRAM [Concomitant]
  4. ENOXAPARIN SODIUM [Concomitant]
  5. VINCRISTINE [Concomitant]
  6. METHOTREXATE [Concomitant]
  7. IFOSFAMIDE [Concomitant]

REACTIONS (1)
  - RADICULITIS LUMBOSACRAL [None]
